FAERS Safety Report 15571687 (Version 1)
Quarter: 2018Q4

REPORT INFORMATION
  Report Type: Spontaneous
  Country: PL (occurrence: PL)
  Receive Date: 20181031
  Receipt Date: 20181031
  Transmission Date: 20190205
  Serious: Yes (Other)
  Sender: FDA-Public Use
  Company Number: PL-AMGEN-POLSP2018151260

PATIENT
  Age: 37 Year
  Sex: Male

DRUGS (7)
  1. NEULASTA [Suspect]
     Active Substance: PEGFILGRASTIM
     Indication: PROPHYLAXIS
     Dosage: UNK UNK, CYCLICAL
     Route: 065
  2. ETOPOSIDE. [Concomitant]
     Active Substance: ETOPOSIDE
     Indication: METASTASES TO LYMPH NODES
  3. BLEOMYCIN [Concomitant]
     Active Substance: BLEOMYCIN SULFATE
     Indication: TESTIS CANCER
     Dosage: UNK UNK, CYCLICAL
  4. CISPLATIN. [Concomitant]
     Active Substance: CISPLATIN
     Indication: TESTIS CANCER
     Dosage: UNK UNK, CYCLICAL
  5. CISPLATIN. [Concomitant]
     Active Substance: CISPLATIN
     Indication: METASTASES TO LYMPH NODES
  6. BLEOMYCIN [Concomitant]
     Active Substance: BLEOMYCIN SULFATE
     Indication: METASTASES TO LYMPH NODES
  7. ETOPOSIDE. [Concomitant]
     Active Substance: ETOPOSIDE
     Indication: TESTIS CANCER
     Dosage: UNK UNK, CYCLICAL

REACTIONS (2)
  - Thrombocytopenia [Unknown]
  - Anaemia [Unknown]
